FAERS Safety Report 7532799-X (Version None)
Quarter: 2011Q2

REPORT INFORMATION
  Report Type: 
  Country: None (occurrence: None)
  Receive Date: 20110608
  Receipt Date: 20110531
  Transmission Date: 20111010
  Serious: Yes (Hospitalization)
  Sender: FDA-Public Use
  Company Number: B0724663A

PATIENT
  Sex: Female

DRUGS (8)
  1. EUTIROX [Concomitant]
  2. ALLOPURINOL [Concomitant]
     Dosage: 150MG PER DAY
  3. LASIX [Concomitant]
  4. RAMIPRIL [Concomitant]
  5. LORAZEPAM [Concomitant]
  6. LANOXIN [Suspect]
     Indication: ATRIAL FIBRILLATION
     Route: 048
     Dates: start: 20100301, end: 20110514
  7. OMEPRAZOLE [Concomitant]
     Dosage: 10MG PER DAY
  8. INTRAFER [Concomitant]
     Dosage: 40DROP PER DAY

REACTIONS (1)
  - SINUS BRADYCARDIA [None]
